FAERS Safety Report 6439025-3 (Version None)
Quarter: 2009Q4

REPORT INFORMATION
  Report Type: 
  Country: None (occurrence: None)
  Receive Date: 20091111
  Receipt Date: 20091111
  Transmission Date: 20100525
  Serious: Yes (Hospitalization)
  Sender: FDA-Public Use
  Company Number: None

PATIENT
  Age: 67 Year
  Sex: Female
  Weight: 86.4 kg

DRUGS (16)
  1. ADRIAMYCIN PFS [Suspect]
     Indication: DIFFUSE LARGE B-CELL LYMPHOMA
     Dosage: 100MG EVERY 2 WEEKS IV
     Route: 042
     Dates: start: 20090801
  2. VINCRISTINE [Suspect]
     Indication: DIFFUSE LARGE B-CELL LYMPHOMA
     Dosage: 2MG EVERY 2 WEEKS IV
     Route: 042
     Dates: start: 20090801
  3. VERAPOMIL [Concomitant]
  4. INDAFAMIDE [Concomitant]
  5. METFORMIN HCL [Concomitant]
  6. GLIPIZIDE [Concomitant]
  7. JANUVIA [Concomitant]
  8. LORTAB [Concomitant]
  9. CELEXA [Concomitant]
  10. CRESTOR [Concomitant]
  11. EVISTA [Concomitant]
  12. PLAVIX [Concomitant]
  13. TYLENOL (CAPLET) [Concomitant]
  14. BENADRYL [Concomitant]
  15. ANZEMET [Concomitant]
  16. PEPCID [Concomitant]

REACTIONS (2)
  - INJECTION SITE EXTRAVASATION [None]
  - THERMAL BURN [None]
